FAERS Safety Report 13707811 (Version 3)
Quarter: 2017Q3

REPORT INFORMATION
  Report Type: Report from Study
  Country: IT (occurrence: IT)
  Receive Date: 20170630
  Receipt Date: 20170907
  Transmission Date: 20171127
  Serious: Yes (Death, Life-Threatening, Hospitalization, Other)
  Sender: FDA-Public Use
  Company Number: IT-TEVA-782058ACC

PATIENT
  Age: 67 Year
  Sex: Female

DRUGS (11)
  1. ETOPOSIDE TEVA [Suspect]
     Active Substance: ETOPOSIDE
     Indication: CHEMOTHERAPY
     Dosage: 238.50 MG AT DAY 1,2 AND 3
     Dates: start: 20170522
  2. EPIRUBICIN ACCORD [Suspect]
     Active Substance: EPIRUBICIN HYDROCHLORIDE
     Indication: CHEMOTHERAPY
     Dosage: 159 MG AT DAY 1
     Dates: start: 20170522
  3. PALONOSETRON CLORIDRATO [Concomitant]
     Active Substance: PALONOSETRON HYDROCHLORIDE
     Indication: ANTIEMETIC SUPPORTIVE CARE
     Dosage: .25 MILLIGRAM DAILY;
     Route: 042
     Dates: start: 20170619, end: 20170621
  4. RANITIDINA CLORIDRATO [Concomitant]
     Indication: ANTACID THERAPY
     Dosage: 100 MILLIGRAM DAILY;
     Route: 042
     Dates: start: 20170619, end: 20170621
  5. DESAMETASONE [Concomitant]
     Active Substance: DEXAMETHASONE
     Indication: ANTIINFLAMMATORY THERAPY
     Dosage: 16 MILLIGRAM DAILY;
     Route: 042
     Dates: start: 20170619, end: 20170621
  6. CLORFENAMINE MALEATO [Concomitant]
     Indication: ANTIALLERGIC THERAPY
     Dosage: 10 MILLIGRAM DAILY;
     Route: 042
     Dates: start: 20170619, end: 20170619
  7. LONQUEX [Suspect]
     Active Substance: LIPEGFILGRASTIM
     Indication: PROPHYLAXIS
     Route: 058
     Dates: start: 20170219
  8. HOLOXAN BAXTER [Suspect]
     Active Substance: IFOSFAMIDE
     Indication: CHEMOTHERAPY
     Dosage: AT DAY 1,2 AND 3
     Dates: start: 20170522
  9. DESAMETASONE [Concomitant]
     Active Substance: DEXAMETHASONE
     Dates: start: 20170214, end: 20170414
  10. MESNA. [Concomitant]
     Active Substance: MESNA
     Indication: CHEMOTHERAPY
     Dosage: 5088 MILLIGRAM DAILY;
     Route: 042
     Dates: start: 20170619, end: 20170621
  11. RITUXIMAB. [Suspect]
     Active Substance: RITUXIMAB
     Indication: CHEMOTHERAPY
     Dosage: 596.25 MG AT DAY 1
     Dates: start: 20170215

REACTIONS (2)
  - Multiple organ dysfunction syndrome [Fatal]
  - Transient ischaemic attack [Fatal]

NARRATIVE: CASE EVENT DATE: 20170621
